FAERS Safety Report 4993274-X (Version None)
Quarter: 2006Q1

REPORT INFORMATION
  Report Type: 
  Country: None (occurrence: None)
  Receive Date: 20060314
  Receipt Date: 20050603
  Transmission Date: 20060701
  Serious: Yes (Other)
  Sender: FDA-Public Use
  Company Number: 200512167BCC

PATIENT
  Age: 69 Year
  Sex: Male
  Weight: 108.8633 kg

DRUGS (5)
  1. ALEVE (CAPLET) [Suspect]
     Indication: BACK PAIN
     Dosage: 440 MG, TOTAL DAILY, ORAL
     Route: 048
     Dates: start: 20050519
  2. ATENOLOL [Concomitant]
  3. CHLORTHALIDONE [Concomitant]
  4. LOVASTATIN [Concomitant]
  5. TERAZOSIN HCL [Concomitant]

REACTIONS (1)
  - HAEMATOCHEZIA [None]
